FAERS Safety Report 19616226 (Version 3)
Quarter: 2021Q4

REPORT INFORMATION
  Report Type: Report from Study
  Country: US (occurrence: US)
  Receive Date: 20210727
  Receipt Date: 20211207
  Transmission Date: 20220303
  Serious: Yes (Hospitalization, Disabling, Other)
  Sender: FDA-Public Use
  Company Number: US-TAKEDA-US202000728

PATIENT
  Age: 69 Year
  Sex: Female
  Weight: 49 kg

DRUGS (25)
  1. TEDUGLUTIDE [Suspect]
     Active Substance: TEDUGLUTIDE
     Indication: Short-bowel syndrome
     Dosage: 2.4 MILLIGRAM (0.05 MG/KG DAILY DOSE AND 7 DOSES/WEEK) 1X/DAY:QD
     Route: 065
     Dates: start: 201709, end: 20190430
  2. TEDUGLUTIDE [Suspect]
     Active Substance: TEDUGLUTIDE
     Indication: Short-bowel syndrome
     Dosage: 2.4 MILLIGRAM (0.05 MG/KG DAILY DOSE AND 7 DOSES/WEEK) 1X/DAY:QD
     Route: 065
     Dates: start: 201709, end: 20190430
  3. TEDUGLUTIDE [Suspect]
     Active Substance: TEDUGLUTIDE
     Indication: Short-bowel syndrome
     Dosage: 2.4 MILLIGRAM (0.05 MG/KG DAILY DOSE AND 7 DOSES/WEEK) 1X/DAY:QD
     Route: 065
     Dates: start: 201709, end: 20190430
  4. TEDUGLUTIDE [Suspect]
     Active Substance: TEDUGLUTIDE
     Indication: Short-bowel syndrome
     Dosage: 2.4 MILLIGRAM (0.05 MG/KG DAILY DOSE AND 7 DOSES/WEEK) 1X/DAY:QD
     Route: 065
     Dates: start: 201709, end: 20190430
  5. TEDUGLUTIDE [Suspect]
     Active Substance: TEDUGLUTIDE
     Dosage: 2.5 MILLIGRAM (0.05 MG/KG DAILY DOSE AND 7 DOSES/WEEK) 1X/DAY:QD
     Route: 065
     Dates: start: 20190430, end: 202011
  6. TEDUGLUTIDE [Suspect]
     Active Substance: TEDUGLUTIDE
     Dosage: 2.5 MILLIGRAM (0.05 MG/KG DAILY DOSE AND 7 DOSES/WEEK) 1X/DAY:QD
     Route: 065
     Dates: start: 20190430, end: 202011
  7. TEDUGLUTIDE [Suspect]
     Active Substance: TEDUGLUTIDE
     Dosage: 2.5 MILLIGRAM (0.05 MG/KG DAILY DOSE AND 7 DOSES/WEEK) 1X/DAY:QD
     Route: 065
     Dates: start: 20190430, end: 202011
  8. TEDUGLUTIDE [Suspect]
     Active Substance: TEDUGLUTIDE
     Dosage: 2.5 MILLIGRAM (0.05 MG/KG DAILY DOSE AND 7 DOSES/WEEK) 1X/DAY:QD
     Route: 065
     Dates: start: 20190430, end: 202011
  9. TEDUGLUTIDE [Suspect]
     Active Substance: TEDUGLUTIDE
     Dosage: 2.500 MILLIGRAM (0.0500 MG/KG), QD
     Route: 065
     Dates: start: 20190430, end: 202011
  10. TEDUGLUTIDE [Suspect]
     Active Substance: TEDUGLUTIDE
     Dosage: 2.500 MILLIGRAM (0.0500 MG/KG), QD
     Route: 065
     Dates: start: 20190430, end: 202011
  11. TEDUGLUTIDE [Suspect]
     Active Substance: TEDUGLUTIDE
     Dosage: 2.500 MILLIGRAM (0.0500 MG/KG), QD
     Route: 065
     Dates: start: 20190430, end: 202011
  12. TEDUGLUTIDE [Suspect]
     Active Substance: TEDUGLUTIDE
     Dosage: 2.500 MILLIGRAM (0.0500 MG/KG), QD
     Route: 065
     Dates: start: 20190430, end: 202011
  13. TEDUGLUTIDE [Suspect]
     Active Substance: TEDUGLUTIDE
     Dosage: 2.500 MILLIGRAM (0.0500 MG/KG), 4/WEEK
     Route: 065
     Dates: start: 202011, end: 202012
  14. TEDUGLUTIDE [Suspect]
     Active Substance: TEDUGLUTIDE
     Dosage: 2.500 MILLIGRAM (0.0500 MG/KG), 4/WEEK
     Route: 065
     Dates: start: 202011, end: 202012
  15. TEDUGLUTIDE [Suspect]
     Active Substance: TEDUGLUTIDE
     Dosage: 2.500 MILLIGRAM (0.0500 MG/KG), 4/WEEK
     Route: 065
     Dates: start: 202011, end: 202012
  16. TEDUGLUTIDE [Suspect]
     Active Substance: TEDUGLUTIDE
     Dosage: 2.500 MILLIGRAM (0.0500 MG/KG), 4/WEEK
     Route: 065
     Dates: start: 202011, end: 202012
  17. TEDUGLUTIDE [Suspect]
     Active Substance: TEDUGLUTIDE
     Dosage: 2.000 MILLIGRAM (0.0500 MG/KG), QD
     Route: 065
     Dates: start: 202012
  18. TEDUGLUTIDE [Suspect]
     Active Substance: TEDUGLUTIDE
     Dosage: 2.000 MILLIGRAM (0.0500 MG/KG), QD
     Route: 065
     Dates: start: 202012
  19. TEDUGLUTIDE [Suspect]
     Active Substance: TEDUGLUTIDE
     Dosage: 2.000 MILLIGRAM (0.0500 MG/KG), QD
     Route: 065
     Dates: start: 202012
  20. TEDUGLUTIDE [Suspect]
     Active Substance: TEDUGLUTIDE
     Dosage: 2.000 MILLIGRAM (0.0500 MG/KG), QD
     Route: 065
     Dates: start: 202012
  21. URSODIOL [Concomitant]
     Active Substance: URSODIOL
     Indication: Cholestasis
     Dosage: 1 DOSAGE FORM, BID
     Route: 048
     Dates: start: 20200423, end: 20200727
  22. URSODIOL [Concomitant]
     Active Substance: URSODIOL
     Dosage: 1 DOSAGE FORM, BID
     Route: 048
     Dates: start: 20190227, end: 20190528
  23. CYANOCOBALAMIN [Concomitant]
     Active Substance: CYANOCOBALAMIN
     Indication: Vitamin supplementation
     Dosage: 1 MILLIGRAM
     Route: 030
     Dates: start: 2019
  24. PROBIOTIC [BIFIDOBACTERIUM BIFIDUM;BIFIDOBACTERIUM LACTIS;BIFIDOBACTER [Concomitant]
     Indication: Gastrointestinal disorder prophylaxis
  25. GOLYTELY [Concomitant]
     Active Substance: POLYETHYLENE GLYCOL 3350\POTASSIUM CHLORIDE\SODIUM BICARBONATE\SODIUM CHLORIDE\SODIUM SULFATE
     Indication: Constipation

REACTIONS (2)
  - Spinal pain [Not Recovered/Not Resolved]
  - Spinal fracture [Recovered/Resolved]

NARRATIVE: CASE EVENT DATE: 20180401
